FAERS Safety Report 9505751 (Version 1)
Quarter: 2013Q1

REPORT INFORMATION
  Report Type: Spontaneous
  Country: US (occurrence: None)
  Receive Date: 20130220
  Receipt Date: 20130220
  Transmission Date: 20140127
  Serious: No
  Sender: FDA-Public Use
  Company Number: 1000040708

PATIENT
  Age: 43 Year
  Sex: Female

DRUGS (3)
  1. VIIBRYD [Suspect]
     Indication: DEPRESSION
     Route: 048
     Dates: start: 20121118, end: 20121124
  2. VIIBRYD [Suspect]
     Indication: DEPRESSION
  3. CLONIDINE (CLONDISINE) (CLONIDINE) [Concomitant]

REACTIONS (3)
  - Nausea [None]
  - Chills [None]
  - Vomiting [None]
